FAERS Safety Report 10064604 (Version 1)
Quarter: 2014Q2

REPORT INFORMATION
  Report Type: Spontaneous
  Country: US (occurrence: US)
  Receive Date: 20140408
  Receipt Date: 20140408
  Transmission Date: 20141212
  Serious: Yes (Hospitalization, Other)
  Sender: FDA-Public Use
  Company Number: US-ELI_LILLY_AND_COMPANY-US201404000228

PATIENT
  Age: 37 Year
  Sex: Female
  Weight: 77.1 kg

DRUGS (1)
  1. HUMALOG LISPRO [Suspect]
     Indication: PRODUCT USED FOR UNKNOWN INDICATION
     Route: 058

REACTIONS (6)
  - Blood glucose increased [Unknown]
  - Ketoacidosis [Unknown]
  - Vomiting [Unknown]
  - Dyspnoea [Unknown]
  - Blood ketone body [Unknown]
  - Blood glucose increased [Unknown]
